FAERS Safety Report 8266390-7 (Version None)
Quarter: 2012Q2

REPORT INFORMATION
  Report Type: 
  Country: None (occurrence: None)
  Receive Date: 20120406
  Receipt Date: 20120329
  Transmission Date: 20120825
  Serious: Yes (Other)
  Sender: FDA-Public Use
  Company Number: US-ALLERGAN-1204539US

PATIENT
  Age: 70 Year
  Sex: Male

DRUGS (3)
  1. BOTULINUM TOXIN TYPE A [Suspect]
     Indication: URINARY INCONTINENCE
     Dosage: 200 UNITS, SINGLE
     Route: 030
     Dates: start: 20120307, end: 20120307
  2. NEXIUM [Concomitant]
     Indication: PRODUCT USED FOR UNKNOWN INDICATION
     Dosage: UNK
  3. TRIAMTERINE [Concomitant]
     Indication: PRODUCT USED FOR UNKNOWN INDICATION
     Dosage: UNK

REACTIONS (3)
  - PYREXIA [None]
  - URINE OUTPUT DECREASED [None]
  - URINARY RETENTION [None]
